FAERS Safety Report 8134156-4 (Version None)
Quarter: 2012Q1

REPORT INFORMATION
  Report Type: 
  Country: None (occurrence: None)
  Receive Date: 20120207
  Receipt Date: 20120130
  Transmission Date: 20120608
  Serious: No
  Sender: FDA-Public Use
  Company Number: 2012SP003818

PATIENT
  Age: 29 Year
  Sex: Female
  Weight: 110 kg

DRUGS (2)
  1. OLANZAPINE [Concomitant]
  2. SYCREST (ASENAPINE /05706901/) [Suspect]
     Dosage: 20 MG;QD;
     Dates: start: 20111205, end: 20120102

REACTIONS (4)
  - NO THERAPEUTIC RESPONSE [None]
  - WEIGHT INCREASED [None]
  - OFF LABEL USE [None]
  - OEDEMA PERIPHERAL [None]
